FAERS Safety Report 22217445 (Version 1)
Quarter: 2023Q2

REPORT INFORMATION
  Report Type: Spontaneous
  Country: IT (occurrence: IT)
  Receive Date: 20230417
  Receipt Date: 20230417
  Transmission Date: 20230722
  Serious: No
  Sender: FDA-Public Use
  Company Number: IT-ALKEM LABORATORIES LIMITED-IT-ALKEM-2022-12147

PATIENT

DRUGS (3)
  1. ARIPIPRAZOLE [Suspect]
     Active Substance: ARIPIPRAZOLE
     Indication: Schizophrenia
     Dosage: 10 MILLIGRAM, QD (LOW DOSE) IN THE MONTH
     Route: 048
  2. ARIPIPRAZOLE [Suspect]
     Active Substance: ARIPIPRAZOLE
     Dosage: 30 MILLIGRAM, QD (HIGH DOSE) IN THE MONTH
     Route: 048
  3. ARIPIPRAZOLE [Suspect]
     Active Substance: ARIPIPRAZOLE
     Dosage: 400 MILLIGRAM ONCE MONTHLY, INJECTION
     Route: 065

REACTIONS (7)
  - Dermatitis allergic [Unknown]
  - Injection site pain [Unknown]
  - Insomnia [Unknown]
  - Weight increased [Unknown]
  - Agitation [Unknown]
  - Akathisia [Unknown]
  - Anxiety [Unknown]
